FAERS Safety Report 15001065 (Version 1)
Quarter: 2018Q2

REPORT INFORMATION
  Report Type: Spontaneous
  Country: US (occurrence: US)
  Receive Date: 20180612
  Receipt Date: 20180612
  Transmission Date: 20180711
  Serious: Yes (Death)
  Sender: FDA-Public Use
  Company Number: US-NATCO PHARMA-2018NAT00128

PATIENT
  Age: 71 Year
  Sex: Male

DRUGS (6)
  1. OSELTAMIVIR PHOSPHATE. [Suspect]
     Active Substance: OSELTAMIVIR PHOSPHATE
     Dosage: 75 MG, UNK
     Dates: start: 20180526, end: 20180526
  2. ALLOPURINOL. [Concomitant]
     Active Substance: ALLOPURINOL
  3. COUMADIN [Concomitant]
     Active Substance: WARFARIN SODIUM
  4. LISINOPRIL. [Concomitant]
     Active Substance: LISINOPRIL
  5. ASPIRIN. [Concomitant]
     Active Substance: ASPIRIN
  6. METFORMIN [Concomitant]
     Active Substance: METFORMIN HYDROCHLORIDE

REACTIONS (2)
  - Arrhythmia [Fatal]
  - Death [Fatal]

NARRATIVE: CASE EVENT DATE: 20180526
